FAERS Safety Report 6356097-5 (Version None)
Quarter: 2009Q3

REPORT INFORMATION
  Report Type: 
  Country: None (occurrence: None)
  Receive Date: 20090915
  Receipt Date: 20090707
  Transmission Date: 20100115
  Serious: No
  Sender: FDA-Public Use
  Company Number: US-BAYER-200925705NA

PATIENT
  Sex: Female

DRUGS (1)
  1. YAZ [Suspect]
     Indication: MENSTRUATION IRREGULAR
     Route: 048
     Dates: start: 20090521

REACTIONS (4)
  - DYSMENORRHOEA [None]
  - MENORRHAGIA [None]
  - MENSTRUAL DISORDER [None]
  - METRORRHAGIA [None]
